FAERS Safety Report 5060208-1 (Version None)
Quarter: 2006Q3

REPORT INFORMATION
  Report Type: 
  Country: None (occurrence: None)
  Receive Date: 20060724
  Receipt Date: 20060613
  Transmission Date: 20061208
  Serious: Yes (Disabling)
  Sender: FDA-Public Use
  Company Number: FR-GILEAD-2006-0009734

PATIENT
  Sex: Female
  Weight: 62 kg

DRUGS (4)
  1. VIREAD [Suspect]
     Indication: HIV INFECTION
     Route: 048
     Dates: start: 20031101
  2. SUSTIVA [Concomitant]
     Indication: HIV INFECTION
     Route: 048
     Dates: start: 20031101
  3. SUSTIVA [Concomitant]
     Route: 048
     Dates: start: 20001001, end: 20030701
  4. EPIVIR [Concomitant]
     Indication: HIV INFECTION
     Route: 048
     Dates: start: 20031101

REACTIONS (3)
  - HEPATITIS C [None]
  - HYPOCALCAEMIA [None]
  - OSTEOARTHRITIS [None]
